FAERS Safety Report 6691720-7 (Version None)
Quarter: 2010Q2

REPORT INFORMATION
  Report Type: 
  Country: None (occurrence: None)
  Receive Date: 20100422
  Receipt Date: 20090729
  Transmission Date: 20101027
  Serious: No
  Sender: FDA-Public Use
  Company Number: US-ASTRAZENECA-2009SE06373

PATIENT
  Age: 65 Year
  Sex: Female
  Weight: 77.1 kg

DRUGS (8)
  1. TOPROL-XL [Suspect]
     Indication: HYPERTENSION
     Route: 048
  2. DIOVAN [Concomitant]
     Indication: HYPERTENSION
  3. BONIVA [Concomitant]
  4. OMEPRAZOLE [Concomitant]
  5. VITAMIN B-12 [Concomitant]
  6. FOLIC ACID [Concomitant]
  7. OXYBUTYNIN CHLORIDE [Concomitant]
  8. EVISTA [Concomitant]

REACTIONS (1)
  - HOT FLUSH [None]
